FAERS Safety Report 8354346-5 (Version None)
Quarter: 2012Q2

REPORT INFORMATION
  Report Type: 
  Country: None (occurrence: None)
  Receive Date: 20120511
  Receipt Date: 20111012
  Transmission Date: 20120825
  Serious: Yes (Other)
  Sender: FDA-Public Use
  Company Number: GB-WATSON-2011-16599

PATIENT
  Age: 64 Year
  Sex: Female
  Weight: 108 kg

DRUGS (10)
  1. CUBICIN [Suspect]
     Indication: ARTHRITIS INFECTIVE
     Dosage: 500 MG, UNK
     Route: 065
     Dates: start: 20110630, end: 20110719
  2. ACETAMINOPHEN [Concomitant]
     Indication: PRODUCT USED FOR UNKNOWN INDICATION
     Dosage: 4 G, UNKNOWN
     Route: 048
     Dates: start: 20110623
  3. CITALOPRAM HYDROBROMIDE [Concomitant]
     Indication: PRODUCT USED FOR UNKNOWN INDICATION
     Dosage: UNK
     Route: 048
  4. FUROSEMIDE [Concomitant]
     Indication: PRODUCT USED FOR UNKNOWN INDICATION
     Dosage: 40 MG, UNKNOWN
     Route: 048
     Dates: start: 20110623
  5. ROPINIROLE [Concomitant]
     Indication: PRODUCT USED FOR UNKNOWN INDICATION
     Dosage: 4 MG, TID
     Route: 048
     Dates: start: 20110623
  6. TRAMADOL HYDROCHLORIDE [Concomitant]
     Indication: PRODUCT USED FOR UNKNOWN INDICATION
     Dosage: 50 MG, QID
     Route: 048
  7. CUBICIN [Suspect]
     Indication: OSTEOMYELITIS
  8. DOMPERIDONE [Concomitant]
     Indication: PRODUCT USED FOR UNKNOWN INDICATION
     Dosage: 10 MG, TID
     Route: 048
     Dates: start: 20110623
  9. CIPROFLOXACIN HCL [Suspect]
     Indication: OSTEOMYELITIS
     Dosage: 750 MG, BID
     Route: 048
     Dates: start: 20110629, end: 20110719
  10. CIPROFLOXACIN HCL [Suspect]
     Indication: ARTHRITIS INFECTIVE

REACTIONS (2)
  - PERIPHERAL NERVE LESION [None]
  - NEUROPATHY PERIPHERAL [None]
